FAERS Safety Report 7380361-4 (Version None)
Quarter: 2011Q1

REPORT INFORMATION
  Report Type: 
  Country: None (occurrence: None)
  Receive Date: 20110318
  Receipt Date: 20110303
  Transmission Date: 20110831
  Serious: Yes (Hospitalization)
  Sender: FDA-Public Use
  Company Number: AUR-APL-2011-00860

PATIENT
  Age: 40 Year
  Sex: Female

DRUGS (1)
  1. CITALOPRAM [Suspect]
     Dosage: 10MG-ORAL
     Route: 048

REACTIONS (3)
  - FALL [None]
  - NO THERAPEUTIC RESPONSE [None]
  - FEELING ABNORMAL [None]
